FAERS Safety Report 17898671 (Version 1)
Quarter: 2020Q2

REPORT INFORMATION
  Report Type: Report from Study
  Country: GB (occurrence: GB)
  Receive Date: 20200616
  Receipt Date: 20200616
  Transmission Date: 20200714
  Serious: Yes (Other)
  Sender: FDA-Public Use
  Company Number: GB-ROCHE-2617833

PATIENT
  Sex: Female

DRUGS (5)
  1. DOCETAXEL. [Concomitant]
     Active Substance: DOCETAXEL
     Indication: HER2 POSITIVE BREAST CANCER
  2. EPIRUBICIN [Concomitant]
     Active Substance: EPIRUBICIN
     Indication: HER2 POSITIVE BREAST CANCER
  3. HERCEPTIN [Suspect]
     Active Substance: TRASTUZUMAB
     Indication: HER2 POSITIVE BREAST CANCER
     Route: 041
  4. PERJETA [Suspect]
     Active Substance: PERTUZUMAB
     Indication: HER2 POSITIVE BREAST CANCER
     Route: 065
  5. CYCLOPHOSPHAMIDE. [Concomitant]
     Active Substance: CYCLOPHOSPHAMIDE
     Indication: HER2 POSITIVE BREAST CANCER

REACTIONS (6)
  - Malaise [Unknown]
  - Chest pain [Unknown]
  - Anxiety [Unknown]
  - Influenza like illness [Unknown]
  - Insomnia [Unknown]
  - Alopecia [Unknown]
